FAERS Safety Report 13765754 (Version 1)
Quarter: 2017Q3

REPORT INFORMATION
  Report Type: Spontaneous
  Country: US (occurrence: US)
  Receive Date: 20170718
  Receipt Date: 20170718
  Transmission Date: 20171127
  Serious: Yes (Life-Threatening, Hospitalization)
  Sender: FDA-Public Use
  Company Number: None

PATIENT
  Age: 2 Day
  Sex: Male
  Weight: 83.99 kg

DRUGS (16)
  1. LIALDA [Suspect]
     Active Substance: MESALAMINE
     Indication: COLITIS ULCERATIVE
     Dosage: ?          QUANTITY:2 PILLS DAILY?
     Route: 048
     Dates: start: 20170403, end: 20170505
  2. DIAZEPAM. [Concomitant]
     Active Substance: DIAZEPAM
  3. PROMETHAZINE [Concomitant]
     Active Substance: PROMETHAZINE\PROMETHAZINE HYDROCHLORIDE
  4. FISH OIL [Concomitant]
     Active Substance: FISH OIL
  5. ULTIMATE COLON CARE [Concomitant]
  6. DICLOFENAC [Concomitant]
     Active Substance: DICLOFENAC
  7. GABAPENTIN. [Concomitant]
     Active Substance: GABAPENTIN
  8. ATORVASTATIN [Concomitant]
     Active Substance: ATORVASTATIN
  9. TRAZODONE [Concomitant]
     Active Substance: TRAZODONE HYDROCHLORIDE
  10. SAW PALMETTO [Concomitant]
     Active Substance: HERBALS\SAW PALMETTO
  11. CARVEDILOL. [Concomitant]
     Active Substance: CARVEDILOL
  12. ZOLPIDEM [Concomitant]
     Active Substance: ZOLPIDEM\ZOLPIDEM TARTRATE
  13. MECLIZINE [Concomitant]
     Active Substance: MECLIZINE HYDROCHLORIDE
  14. CLORD/CLIDI [Concomitant]
  15. LOSARTAN. [Concomitant]
     Active Substance: LOSARTAN
  16. BAYER ASPIRIN [Concomitant]
     Active Substance: ASPIRIN

REACTIONS (8)
  - Myocardial infarction [None]
  - Dyspnoea [None]
  - Cardiac arrest [None]
  - Dizziness [None]
  - Myocarditis [None]
  - Chest pain [None]
  - Chest discomfort [None]
  - Therapy cessation [None]

NARRATIVE: CASE EVENT DATE: 20170505
